FAERS Safety Report 12565935 (Version 1)
Quarter: 2016Q3

REPORT INFORMATION
  Report Type: Spontaneous
  Country: US (occurrence: US)
  Receive Date: 20160718
  Receipt Date: 20160718
  Transmission Date: 20161109
  Serious: Yes (Other)
  Sender: FDA-Public Use
  Company Number: US-BAYER-2016-134978

PATIENT
  Sex: Female

DRUGS (1)
  1. SKYLA [Suspect]
     Active Substance: LEVONORGESTREL
     Dosage: 14 MCG/24HR, CONT
     Route: 015
     Dates: start: 2016

REACTIONS (7)
  - Abdominal pain lower [None]
  - Genital haemorrhage [None]
  - Condition aggravated [None]
  - Vaginal haemorrhage [None]
  - Activities of daily living impaired [None]
  - Feeling abnormal [None]
  - Pain [None]

NARRATIVE: CASE EVENT DATE: 2016
